FAERS Safety Report 9735742 (Version 1)
Quarter: 2013Q4

REPORT INFORMATION
  Report Type: Spontaneous
  Country: US (occurrence: None)
  Receive Date: 20131204
  Receipt Date: 20131204
  Transmission Date: 20140711
  Serious: Yes (Hospitalization, Other)
  Sender: FDA-Public Use
  Company Number: KAD201311-001562

PATIENT
  Age: 74 Year
  Sex: Female

DRUGS (4)
  1. RIBAVIRIN [Suspect]
     Indication: CHRONIC HEPATITIS C
     Route: 048
  2. PEGASYS (PEGINTERFERON ALFA-2A) [Suspect]
     Indication: CHRONIC HEPATITIS C
     Route: 058
  3. BOCEPREVIR [Suspect]
     Indication: CHRONIC HEPATITIS C
     Route: 048
  4. LISINOPRIL (LISINOPRIL) [Concomitant]

REACTIONS (10)
  - Metabolic encephalopathy [None]
  - Fatigue [None]
  - Insomnia [None]
  - Hypotension [None]
  - Headache [None]
  - Disorientation [None]
  - Blood sodium decreased [None]
  - Blood chloride decreased [None]
  - Blood glucose increased [None]
  - Electrolyte imbalance [None]
